FAERS Safety Report 5465050-5 (Version None)
Quarter: 2007Q3

REPORT INFORMATION
  Report Type: 
  Country: None (occurrence: None)
  Receive Date: 20070922
  Receipt Date: 20070828
  Transmission Date: 20080115
  Serious: Yes (Other)
  Sender: FDA-Public Use
  Company Number: GB-RANBAXY-2007RR-09674

PATIENT

DRUGS (3)
  1. SERTRALINE [Suspect]
     Indication: DEPRESSION
     Dosage: 100 MG, UNK
     Route: 048
     Dates: start: 20070604
  2. SERTRALINE [Suspect]
     Dosage: 50 MG, UNK
     Route: 048
     Dates: start: 20011221
  3. LANSOPRAZOLE [Concomitant]
     Indication: DYSPEPSIA
     Dosage: 30 MG, UNK
     Route: 048
     Dates: start: 20070302, end: 20070520

REACTIONS (1)
  - ATRIOVENTRICULAR BLOCK FIRST DEGREE [None]
